FAERS Safety Report 8150749-2 (Version None)
Quarter: 2012Q1

REPORT INFORMATION
  Report Type: 
  Country: None (occurrence: None)
  Receive Date: 20120220
  Receipt Date: 20120214
  Transmission Date: 20120608
  Serious: Yes (Other)
  Sender: FDA-Public Use
  Company Number: US-BAYER-2012-015787

PATIENT
  Age: 55 Year
  Sex: Female
  Weight: 73 kg

DRUGS (2)
  1. ANTACID [CALCIUM CARBONATE] [Concomitant]
  2. SODIUM BICARBONATE [Suspect]
     Indication: ABDOMINAL DISCOMFORT
     Dosage: 1 DF, ONCE
     Route: 048
     Dates: start: 20120117, end: 20120117

REACTIONS (5)
  - APHAGIA [None]
  - HYPERSENSITIVITY [None]
  - PRURITUS [None]
  - RASH [None]
  - OEDEMA MOUTH [None]
